FAERS Safety Report 23336601 (Version 1)
Quarter: 2023Q4

REPORT INFORMATION
  Report Type: Spontaneous
  Country: BR (occurrence: BR)
  Receive Date: 20231226
  Receipt Date: 20231226
  Transmission Date: 20240110
  Serious: Yes (Other)
  Sender: FDA-Public Use
  Company Number: BR-BAYER-2023A181972

PATIENT
  Sex: Male

DRUGS (2)
  1. XARELTO [Suspect]
     Active Substance: RIVAROXABAN
     Indication: Product used for unknown indication
     Dosage: 15 MG
     Route: 048
  2. NEBIDO [TESTOSTERONE] [Concomitant]
     Dosage: 250 MG
     Dates: start: 201908

REACTIONS (2)
  - Dengue haemorrhagic fever [Unknown]
  - Disease complication [Unknown]
